FAERS Safety Report 8156009-8 (Version None)
Quarter: 2012Q1

REPORT INFORMATION
  Report Type: 
  Country: None (occurrence: None)
  Receive Date: 20120221
  Receipt Date: 20120221
  Transmission Date: 20120608
  Serious: No
  Sender: FDA-Public Use
  Company Number: None

PATIENT
  Sex: Female

DRUGS (1)
  1. BUPROPION HYDROCHLORIDE [Suspect]
     Indication: DEPRESSION
     Dosage: 1-2 QD PO
     Route: 048
     Dates: start: 20120209, end: 20120216

REACTIONS (5)
  - PRODUCT SUBSTITUTION ISSUE [None]
  - FEELING JITTERY [None]
  - LIP SWELLING [None]
  - HEADACHE [None]
  - DRY MOUTH [None]
